FAERS Safety Report 5506357-2 (Version None)
Quarter: 2007Q4

REPORT INFORMATION
  Report Type: 
  Country: None (occurrence: None)
  Receive Date: 20071105
  Receipt Date: 20071024
  Transmission Date: 20080405
  Serious: Yes (Hospitalization)
  Sender: FDA-Public Use
  Company Number: IT-JNJFOC-20070507012

PATIENT
  Sex: Female
  Weight: 66 kg

DRUGS (4)
  1. DOXORUBICIN HCL [Suspect]
     Route: 042
  2. DOXORUBICIN HCL [Suspect]
     Indication: OVARIAN CANCER
     Route: 042
  3. VELCADE [Suspect]
     Route: 042
  4. VELCADE [Suspect]
     Indication: OVARIAN CANCER
     Route: 042

REACTIONS (2)
  - ORAL CANDIDIASIS [None]
  - PAIN IN EXTREMITY [None]
